FAERS Safety Report 5370266-2 (Version None)
Quarter: 2007Q2

REPORT INFORMATION
  Report Type: 
  Country: None (occurrence: None)
  Receive Date: 20070625
  Receipt Date: 20070625
  Transmission Date: 20071010
  Serious: Yes (Other)
  Sender: FDA-Public Use
  Company Number: None

PATIENT
  Age: 19 Year
  Sex: Female

DRUGS (1)
  1. APLISOL [Suspect]
     Dosage: RIGHT ARM

REACTIONS (5)
  - HYPOAESTHESIA FACIAL [None]
  - HYPOAESTHESIA ORAL [None]
  - LIP SWELLING [None]
  - PARAESTHESIA ORAL [None]
  - RESPIRATORY ARREST [None]
